FAERS Safety Report 5293530-4 (Version None)
Quarter: 2007Q2

REPORT INFORMATION
  Report Type: 
  Country: None (occurrence: None)
  Receive Date: 20070411
  Receipt Date: 20070405
  Transmission Date: 20071010
  Serious: Yes (Other)
  Sender: FDA-Public Use
  Company Number: FR-GLAXOSMITHKLINE-B0465147A

PATIENT
  Age: 53 Year
  Sex: Male

DRUGS (1)
  1. ARIXTRA [Suspect]
     Indication: ANGINA PECTORIS
     Route: 058
     Dates: start: 20070321, end: 20070322

REACTIONS (1)
  - ANGIOEDEMA [None]
